FAERS Safety Report 6033973-4 (Version None)
Quarter: 2009Q1

REPORT INFORMATION
  Report Type: 
  Country: None (occurrence: None)
  Receive Date: 20090112
  Receipt Date: 20090108
  Transmission Date: 20090719
  Serious: Yes (Death)
  Sender: FDA-Public Use
  Company Number: PHHY2008GB32347

PATIENT
  Sex: Male

DRUGS (3)
  1. CLOZARIL [Suspect]
     Indication: SCHIZOPHRENIA
     Dosage: 800 MG/DAY
     Route: 048
     Dates: start: 20070824
  2. DULOXETINE [Concomitant]
     Indication: DEPRESSION
     Dosage: 60 MG/DAY
     Route: 048
  3. NALTREXONE [Concomitant]
     Indication: DRUG DEPENDENCE
     Dosage: 50 MG/DAY
     Route: 048

REACTIONS (1)
  - SUDDEN DEATH [None]
